FAERS Safety Report 5871017-5 (Version None)
Quarter: 2008Q3

REPORT INFORMATION
  Report Type: 
  Country: None (occurrence: None)
  Receive Date: 20080904
  Receipt Date: 20080904
  Transmission Date: 20090109
  Serious: Yes (Hospitalization)
  Sender: FDA-Public Use
  Company Number: US-ABBOTT-08P-163-0472507-00

PATIENT
  Sex: Female
  Weight: 48.578 kg

DRUGS (10)
  1. HUMIRA [Suspect]
     Indication: RHEUMATOID ARTHRITIS
     Route: 050
     Dates: start: 20040101
  2. HUMIRA [Suspect]
  3. HUMIRA [Suspect]
     Indication: RHEUMATOID ARTHRITIS
     Route: 050
     Dates: start: 20070101
  4. TIOTROPIUM BROMIDE [Concomitant]
     Indication: POSTNASAL DRIP
     Dosage: 1 SQUIRT-DOSE DOESN'T KNOW
     Dates: start: 20070101
  5. FLUTICASONE PROPIONATE [Concomitant]
     Indication: POSTNASAL DRIP
     Dosage: SPRAY
     Route: 045
     Dates: start: 20070101
  6. SERETIDE [Concomitant]
     Indication: PROPHYLAXIS
     Dosage: 250/50 MG
     Route: 055
     Dates: start: 20070101
  7. OMEPRAZOLE MAGNESIUM [Concomitant]
     Indication: DRUG USE FOR UNKNOWN INDICATION
     Route: 048
     Dates: start: 20030101
  8. ACETYLSALICYLIC ACID SRT [Concomitant]
     Indication: PROPHYLAXIS
     Route: 048
     Dates: start: 20060101
  9. OXYCODONE HCL [Concomitant]
     Indication: LYME DISEASE
     Route: 048
     Dates: start: 19920101
  10. OXYCODONE HCL [Concomitant]
     Indication: RHEUMATOID ARTHRITIS

REACTIONS (4)
  - LUNG NEOPLASM [None]
  - MUSCULOSKELETAL STIFFNESS [None]
  - PAIN IN EXTREMITY [None]
  - RHEUMATOID ARTHRITIS [None]
